FAERS Safety Report 25023721 (Version 1)
Quarter: 2025Q1

REPORT INFORMATION
  Report Type: Spontaneous
  Country: SE (occurrence: SE)
  Receive Date: 20250228
  Receipt Date: 20250228
  Transmission Date: 20250409
  Serious: Yes (Hospitalization, Other)
  Sender: AUROBINDO
  Company Number: SE-SEMPA-2025-001017

PATIENT
  Age: 16 Year
  Sex: Female

DRUGS (2)
  1. SERTRALINE HYDROCHLORIDE [Suspect]
     Active Substance: SERTRALINE HYDROCHLORIDE
     Indication: Product used for unknown indication
     Route: 048
     Dates: start: 20240120, end: 20240120
  2. LISDEXAMFETAMINE DIMESYLATE [Suspect]
     Active Substance: LISDEXAMFETAMINE DIMESYLATE
     Indication: Product used for unknown indication
     Route: 048
     Dates: start: 20240120, end: 20240120

REACTIONS (3)
  - Intentional overdose [Unknown]
  - Suicide attempt [Unknown]
  - Poisoning deliberate [Unknown]

NARRATIVE: CASE EVENT DATE: 20240120
